FAERS Safety Report 6032076-2 (Version None)
Quarter: 2009Q1

REPORT INFORMATION
  Report Type: 
  Country: None (occurrence: None)
  Receive Date: 20090108
  Receipt Date: 20081231
  Transmission Date: 20090719
  Serious: Yes (Other)
  Sender: FDA-Public Use
  Company Number: US-JNJCH-2009000154

PATIENT
  Age: 33 Year
  Sex: Female
  Weight: 77.1 kg

DRUGS (1)
  1. ACTIFED COLD + ALLERGY PE [Suspect]
     Indication: NASAL CONGESTION
     Dosage: TEXT:ONE PILL ONE TIME
     Route: 048
     Dates: start: 20081224, end: 20081224

REACTIONS (3)
  - CONFUSIONAL STATE [None]
  - DIZZINESS [None]
  - VISION BLURRED [None]
